FAERS Safety Report 22270238 (Version 1)
Quarter: 2023Q2

REPORT INFORMATION
  Report Type: Spontaneous
  Country: US (occurrence: None)
  Receive Date: 20230428
  Receipt Date: 20230428
  Transmission Date: 20230721
  Serious: Yes (Disabling)
  Sender: FDA-Public Use
  Company Number: None

PATIENT
  Sex: Female

DRUGS (1)
  1. ABILIFY [Suspect]
     Active Substance: ARIPIPRAZOLE
     Dates: start: 20221211, end: 20230329

REACTIONS (3)
  - Loss of libido [None]
  - Disturbance in sexual arousal [None]
  - Orgasmic sensation decreased [None]

NARRATIVE: CASE EVENT DATE: 20221229
